FAERS Safety Report 19673436 (Version 1)
Quarter: 2021Q3

REPORT INFORMATION
  Report Type: Spontaneous
  Country: JP (occurrence: JP)
  Receive Date: 20210809
  Receipt Date: 20210809
  Transmission Date: 20211014
  Serious: Yes (Hospitalization, Other)
  Sender: FDA-Public Use
  Company Number: JP-009507513-2104JPN002155J

PATIENT
  Age: 17 Year
  Sex: Female
  Weight: 40 kg

DRUGS (1)
  1. NOXAFIL [Suspect]
     Active Substance: POSACONAZOLE
     Indication: PROPHYLAXIS
     Dosage: 3 DOSAGE FORM, QD
     Route: 048
     Dates: start: 20201223, end: 20210428

REACTIONS (4)
  - Acute graft versus host disease in intestine [Unknown]
  - Hypopituitarism [Recovering/Resolving]
  - Acute graft versus host disease in skin [Unknown]
  - Acute graft versus host disease in liver [Unknown]

NARRATIVE: CASE EVENT DATE: 20210314
